FAERS Safety Report 25885196 (Version 1)
Quarter: 2025Q4

REPORT INFORMATION
  Report Type: Spontaneous
  Country: US (occurrence: None)
  Receive Date: 20251004
  Receipt Date: 20251004
  Transmission Date: 20260118
  Serious: No
  Sender: FDA-CTU
  Company Number: None

PATIENT
  Age: 33 Year
  Sex: Female
  Weight: 99 kg

DRUGS (3)
  1. DULOXETINE [Suspect]
     Active Substance: DULOXETINE
     Indication: Depression
     Dosage: OTHER QUANTITY : 30 CAPSULE(S);?FREQUENCY : AT BEDTIME;?
     Route: 048
  2. HYDROXYZINE [Concomitant]
     Active Substance: HYDROXYZINE HYDROCHLORIDE
  3. MIRTAZAPINE [Concomitant]
     Active Substance: MIRTAZAPINE

REACTIONS (8)
  - Retching [None]
  - Retching [None]
  - Throat irritation [None]
  - Weight decreased [None]
  - Drug intolerance [None]
  - Hypoaesthesia [None]
  - Dizziness [None]
  - Hypoaesthesia [None]

NARRATIVE: CASE EVENT DATE: 20250926
